FAERS Safety Report 8154710-3 (Version None)
Quarter: 2012Q1

REPORT INFORMATION
  Report Type: 
  Country: None (occurrence: None)
  Receive Date: 20120221
  Receipt Date: 20120208
  Transmission Date: 20120608
  Serious: Yes (Hospitalization, Other)
  Sender: FDA-Public Use
  Company Number: PHHY2010AU80252

PATIENT
  Sex: Male

DRUGS (5)
  1. PERINDOPRIL [Concomitant]
     Dosage: 1.25 MG, QD (MORNING)
     Dates: start: 20101117
  2. CLOZARIL [Suspect]
     Indication: SCHIZOPHRENIA
     Dosage: 600 MG, QD
     Route: 048
     Dates: start: 20100111
  3. ZUCLOPENTHIXOL DECANOATE [Concomitant]
     Dosage: 400 MG, QD
     Route: 030
  4. QUETIAPINE [Concomitant]
     Dosage: 300 MG, TID
  5. COLECALCIFEROL [Concomitant]
     Dosage: 50 UG, QD (MORNING)

REACTIONS (6)
  - LEFT VENTRICULAR DYSFUNCTION [None]
  - EJECTION FRACTION DECREASED [None]
  - EXERCISE TOLERANCE DECREASED [None]
  - VENTRICULAR HYPOKINESIA [None]
  - PSYCHOTIC DISORDER [None]
  - PSYCHIATRIC DECOMPENSATION [None]
